FAERS Safety Report 11501541 (Version 2)
Quarter: 2015Q4

REPORT INFORMATION
  Report Type: Report from Study
  Country: US (occurrence: US)
  Receive Date: 20150914
  Receipt Date: 20151023
  Transmission Date: 20160304
  Serious: No
  Sender: FDA-Public Use
  Company Number: PHEH2015US017810

PATIENT
  Age: 57 Year
  Sex: Female

DRUGS (1)
  1. COSENTYX [Suspect]
     Active Substance: SECUKINUMAB
     Indication: PSORIASIS
     Dosage: UNK UKN, UNK
     Route: 065
     Dates: start: 20150509

REACTIONS (6)
  - Arthralgia [Unknown]
  - Pruritus [Unknown]
  - Drug ineffective [Unknown]
  - Burning sensation [Unknown]
  - Frustration [Unknown]
  - Psoriasis [Unknown]

NARRATIVE: CASE EVENT DATE: 20150509
